FAERS Safety Report 5826633-3 (Version None)
Quarter: 2008Q3

REPORT INFORMATION
  Report Type: 
  Country: None (occurrence: None)
  Receive Date: 20080728
  Receipt Date: 20080728
  Transmission Date: 20090109
  Serious: Yes (Other)
  Sender: FDA-Public Use
  Company Number: None

PATIENT
  Sex: Male
  Weight: 86.1834 kg

DRUGS (1)
  1. LIPITOR [Suspect]
     Indication: HYPERTENSION
     Dosage: 5 MG ONCE A DAY
     Dates: start: 20080301, end: 20080501

REACTIONS (5)
  - AMNESIA [None]
  - ARTHRALGIA [None]
  - FALL [None]
  - MYALGIA [None]
  - SYNCOPE [None]
